FAERS Safety Report 7611241-4 (Version None)
Quarter: 2011Q3

REPORT INFORMATION
  Report Type: 
  Country: None (occurrence: None)
  Receive Date: 20110707
  Receipt Date: 20110622
  Transmission Date: 20111222
  Serious: Yes (Hospitalization)
  Sender: FDA-Public Use
  Company Number: 2011MA007929

PATIENT
  Age: 67 Year
  Sex: Female

DRUGS (6)
  1. LISINOPRIL [Concomitant]
  2. ASPIRIN [Concomitant]
  3. ACETAMINOPHEN AND HYDROCODONE BITARTRATE [Concomitant]
  4. CLOPIDOGREL [Concomitant]
  5. METOPROLOL TARTRATE [Concomitant]
  6. METFORMIN HCL [Suspect]
     Indication: DIABETES MELLITUS

REACTIONS (9)
  - BLINDNESS TRANSIENT [None]
  - HEART RATE DECREASED [None]
  - RESPIRATORY RATE DECREASED [None]
  - LACTIC ACIDOSIS [None]
  - HYPERKALAEMIA [None]
  - HAEMODIALYSIS [None]
  - ALCOHOL POISONING [None]
  - AREFLEXIA [None]
  - HAEMOGLOBIN DECREASED [None]
